FAERS Safety Report 25980264 (Version 1)
Quarter: 2025Q4

REPORT INFORMATION
  Report Type: Spontaneous
  Country: US (occurrence: US)
  Receive Date: 20251030
  Receipt Date: 20251030
  Transmission Date: 20260118
  Serious: Yes (Hospitalization)
  Sender: ELI LILLY AND COMPANY
  Company Number: US-ELI_LILLY_AND_COMPANY-US202510022749

PATIENT
  Age: 28 Year
  Sex: Female

DRUGS (8)
  1. MOUNJARO [Suspect]
     Active Substance: TIRZEPATIDE
     Indication: Cystic fibrosis
     Dosage: 5 MG, UNKNOWN
     Route: 065
     Dates: start: 20251001, end: 20251019
  2. MOUNJARO [Suspect]
     Active Substance: TIRZEPATIDE
     Indication: Cystic fibrosis
     Dosage: 5 MG, UNKNOWN
     Route: 065
     Dates: start: 20251001, end: 20251019
  3. MOUNJARO [Suspect]
     Active Substance: TIRZEPATIDE
     Indication: Cystic fibrosis
     Dosage: 5 MG, UNKNOWN
     Route: 065
     Dates: start: 20251001, end: 20251019
  4. MOUNJARO [Suspect]
     Active Substance: TIRZEPATIDE
     Indication: Cystic fibrosis
     Dosage: 5 MG, UNKNOWN
     Route: 065
     Dates: start: 20251001, end: 20251019
  5. MOUNJARO [Suspect]
     Active Substance: TIRZEPATIDE
     Indication: Pancreatogenous diabetes
  6. MOUNJARO [Suspect]
     Active Substance: TIRZEPATIDE
     Indication: Pancreatogenous diabetes
  7. MOUNJARO [Suspect]
     Active Substance: TIRZEPATIDE
     Indication: Pancreatogenous diabetes
  8. MOUNJARO [Suspect]
     Active Substance: TIRZEPATIDE
     Indication: Pancreatogenous diabetes

REACTIONS (2)
  - Blood glucose increased [Not Recovered/Not Resolved]
  - Off label use [Unknown]

NARRATIVE: CASE EVENT DATE: 20251001
